FAERS Safety Report 4279679-3 (Version None)
Quarter: 2004Q1

REPORT INFORMATION
  Report Type: 
  Country: None (occurrence: None)
  Receive Date: 20040122
  Receipt Date: 20040112
  Transmission Date: 20041129
  Serious: Yes (Other)
  Sender: FDA-Public Use
  Company Number: 2004193979DE

PATIENT
  Age: 29 Year
  Sex: Female

DRUGS (1)
  1. DELTASONE [Suspect]
     Dosage: 40 MG, QD

REACTIONS (5)
  - ARTERIAL SPASM [None]
  - BLINDNESS CORTICAL [None]
  - BRAIN OEDEMA [None]
  - CONVULSION [None]
  - ENCEPHALOPATHY [None]
